APPROVED DRUG PRODUCT: NOREPINEPHRINE BITARTRATE
Active Ingredient: NOREPINEPHRINE BITARTRATE
Strength: EQ 1MG BASE/ML
Dosage Form/Route: INJECTABLE;INJECTION
Application: A214455 | Product #001 | TE Code: AP
Applicant: BRECKENRIDGE PHARMACEUTICAL INC
Approved: Jan 22, 2021 | RLD: No | RS: No | Type: RX